FAERS Safety Report 10049403 (Version 1)
Quarter: 2014Q2

REPORT INFORMATION
  Report Type: Spontaneous
  Country: US (occurrence: US)
  Receive Date: 20140401
  Receipt Date: 20140401
  Transmission Date: 20141212
  Serious: Yes (Hospitalization)
  Sender: FDA-Public Use
  Company Number: US-JNJFOC-20140315453

PATIENT
  Age: 6 Decade
  Sex: Male
  Weight: 127.01 kg

DRUGS (2)
  1. SIMPONI [Suspect]
     Indication: COLITIS ULCERATIVE
     Route: 058
  2. SIMPONI [Suspect]
     Indication: COLITIS ULCERATIVE
     Route: 058

REACTIONS (1)
  - Arthralgia [Unknown]
